FAERS Safety Report 8518129-5 (Version None)
Quarter: 2012Q3

REPORT INFORMATION
  Report Type: 
  Country: None (occurrence: None)
  Receive Date: 20120718
  Receipt Date: 20120705
  Transmission Date: 20120928
  Serious: Yes (Other)
  Sender: FDA-Public Use
  Company Number: US-CELGENEUS-163-21880-12062885

PATIENT
  Sex: Female

DRUGS (46)
  1. ABILIFY [Concomitant]
     Dosage: 5 MILLIGRAM
     Route: 048
     Dates: start: 20110523
  2. SENOKOT [Concomitant]
     Dosage: 8.6 MILLICURIES
     Route: 048
     Dates: start: 20120221
  3. ZOFRAN [Concomitant]
     Indication: NAUSEA
     Dosage: 24 MILLIGRAM
     Route: 048
     Dates: start: 20120622
  4. CALCIUM [Concomitant]
     Dosage: 1200 MILLIGRAM
     Route: 065
     Dates: start: 20120522
  5. CALCIUM [Concomitant]
     Dosage: 1000 MILLIGRAM
     Route: 048
     Dates: start: 20120221
  6. FENTORA [Concomitant]
     Dosage: 1200 MICROGRAM
     Route: 002
     Dates: start: 20120629
  7. MIRALAX [Concomitant]
     Dosage: 17 GRAM
     Route: 048
     Dates: start: 20120221
  8. OXYCONTIN [Concomitant]
     Indication: PAIN
     Dosage: 40 MILLIGRAM
     Route: 048
     Dates: start: 20110302
  9. OXYCONTIN [Concomitant]
     Dosage: 60 MILLIGRAM
     Route: 048
     Dates: start: 20110816, end: 20120101
  10. PROCHLORPERAZINE MALEATE [Concomitant]
     Indication: NAUSEA
     Dosage: 10 MILLIGRAM
     Route: 048
     Dates: start: 20120622
  11. ZOLOFT [Concomitant]
     Dosage: 25 MILLIGRAM
     Route: 048
     Dates: start: 20110608
  12. ZOLOFT [Concomitant]
     Dosage: 25 MILLIGRAM
     Route: 048
     Dates: start: 20110714
  13. REVLIMID [Suspect]
     Indication: MULTIPLE MYELOMA
     Dosage: 25 MILLIGRAM
     Route: 048
     Dates: start: 20081201, end: 20090101
  14. ZOMETA [Concomitant]
     Dosage: 4 MILLIGRAM
     Route: 065
     Dates: start: 20110404, end: 20110404
  15. ZOMETA [Concomitant]
     Dosage: .0476 MILLIGRAM
     Route: 065
     Dates: start: 20110404, end: 20120709
  16. ABILIFY [Concomitant]
     Dosage: 10 MILLIGRAM
     Route: 048
     Dates: start: 20120221
  17. ASPIRIN [Concomitant]
     Dosage: 81 MILLIGRAM
     Route: 048
     Dates: start: 20120221
  18. CELEBREX [Concomitant]
     Dosage: 200 MILLIGRAM
     Route: 048
     Dates: start: 20120605
  19. LEXAPRO [Concomitant]
     Dosage: 10 MILLIGRAM
     Route: 048
     Dates: start: 20120127
  20. NEURONTIN [Concomitant]
     Dosage: 300 MILLIGRAM
     Route: 048
     Dates: start: 20120522
  21. NORVASC [Concomitant]
     Dosage: 5 MILLIGRAM
     Route: 048
     Dates: start: 20120522
  22. OXYCONTIN [Concomitant]
     Dosage: 30 MILLIGRAM
     Route: 048
     Dates: start: 20110404
  23. POTASSIUM CHLORIDE [Concomitant]
     Dosage: 30 MILLIEQUIVALENTS
     Route: 048
     Dates: start: 20120221
  24. ZITHROMAX [Concomitant]
     Dosage: 250 MILLIGRAM
     Route: 048
     Dates: start: 20120529
  25. ZOMETA [Concomitant]
     Dosage: 4 MILLIGRAM
     Route: 065
     Dates: start: 20120619
  26. IRON [Concomitant]
     Dosage: 325MG (65MG IRON)
     Route: 048
     Dates: start: 20120522
  27. KLONOPIN [Concomitant]
     Dosage: 1 MILLIGRAM
     Route: 048
     Dates: start: 20120221
  28. NEURONTIN [Concomitant]
     Dosage: 100 MILLIGRAM
     Route: 048
     Dates: start: 20120110
  29. ZOMETA [Concomitant]
     Dosage: 4 MILLIGRAM
     Route: 065
     Dates: start: 20110804, end: 20120605
  30. PLAQUENIL [Concomitant]
     Dosage: 200 MILLIGRAM
     Route: 048
     Dates: start: 20120416
  31. VELCADE [Concomitant]
     Dosage: 1.6 MILLIGRAM/SQ. METER
     Route: 065
     Dates: start: 20120622
  32. DURAGESIC-100 [Concomitant]
     Dosage: 1 PATCH FOR ONE DOSE, THEN 2 PATCHES
     Route: 062
     Dates: start: 20120629
  33. NEXIUM [Concomitant]
     Dosage: 40 MILLIGRAM
     Route: 048
     Dates: start: 20120221
  34. OXYCONTIN [Concomitant]
     Dosage: 40 MILLIGRAM
     Route: 048
     Dates: start: 20110428
  35. REVLIMID [Suspect]
     Dosage: 10 MILLIGRAM
     Route: 048
     Dates: start: 20120522, end: 20120622
  36. HYDROMORPHONE HCL [Concomitant]
     Indication: PAIN
     Dosage: 12 MILLIGRAM
     Route: 048
     Dates: start: 20110404
  37. KLONOPIN [Concomitant]
     Dosage: .5 MILLIGRAM
     Route: 048
     Dates: start: 20120522
  38. MIRAPEX [Concomitant]
     Dosage: .25 MILLIGRAM
     Route: 048
     Dates: start: 20120522
  39. NEURONTIN [Concomitant]
     Dosage: 300 MILLIGRAM
     Route: 048
     Dates: start: 20110608
  40. OXYCONTIN [Concomitant]
     Dosage: 20 MILLIGRAM
     Route: 048
     Dates: start: 20110404
  41. POTASSIUM CHLORIDE [Concomitant]
     Dosage: 99 MILLIGRAM
     Route: 048
     Dates: start: 20120221
  42. RITALIN [Concomitant]
     Dosage: 1-2 TAB IN A.M., 1-2 TABS IN P.M.
     Route: 048
     Dates: start: 20110427
  43. ABILIFY [Concomitant]
     Dosage: 5 MILLIGRAM
     Route: 048
     Dates: start: 20110608
  44. ABILIFY [Concomitant]
     Dosage: 5 MILLIGRAM
     Route: 048
     Dates: start: 20120127
  45. HYDROCHLOROTHIAZIDE [Concomitant]
     Dosage: 25 MILLIGRAM
     Route: 048
     Dates: start: 20110608
  46. OXYCONTIN [Concomitant]
     Dosage: 40 MILLIGRAM
     Route: 048
     Dates: start: 20120522

REACTIONS (2)
  - BREAST CANCER METASTATIC [None]
  - HYPERSENSITIVITY [None]
